FAERS Safety Report 7005459-1 (Version None)
Quarter: 2010Q3

REPORT INFORMATION
  Report Type: 
  Country: None (occurrence: None)
  Receive Date: 20100921
  Receipt Date: 20100917
  Transmission Date: 20110219
  Serious: Yes (Hospitalization)
  Sender: FDA-Public Use
  Company Number: US-CEPHALON-2010004988

PATIENT
  Age: 37 Year
  Sex: Female

DRUGS (1)
  1. PROVIGIL [Suspect]
     Route: 048

REACTIONS (6)
  - AGITATION [None]
  - DRUG ADMINISTRATION ERROR [None]
  - DYSARTHRIA [None]
  - DYSKINESIA [None]
  - HALLUCINATION, VISUAL [None]
  - TACHYCARDIA [None]
